FAERS Safety Report 8786112 (Version 4)
Quarter: 2012Q4

REPORT INFORMATION
  Report Type: 
  Country: US (occurrence: US)
  Receive Date: 20120914
  Receipt Date: 20121207
  Transmission Date: 20130627
  Serious: Yes (Hospitalization, Other)
  Sender: FDA-Public Use
  Company Number: US-009507513-1201USA00243

PATIENT

DRUGS (8)
  1. FOSAMAX [Suspect]
     Indication: OSTEOPOROSIS
     Dosage: 70 mg, qw
     Route: 048
     Dates: start: 200211, end: 200505
  2. FOSAMAX [Suspect]
     Indication: OSTEOPENIA
  3. FOSAMAX [Suspect]
     Indication: OSTEOPOROSIS
     Dosage: 70 mg, qw
     Route: 048
     Dates: start: 200810, end: 201001
  4. FOSAMAX PLUS D [Suspect]
     Indication: OSTEOPOROSIS
     Dosage: 70 mg, qw
     Route: 048
     Dates: start: 200505, end: 200810
  5. VITAMINS (UNSPECIFIED) [Concomitant]
     Dosage: UNK
     Dates: start: 2008
  6. DIOVAN HCT [Concomitant]
     Indication: BLOOD PRESSURE INCREASED
     Dosage: UNK
     Dates: start: 1990
  7. SIMVASTATIN [Concomitant]
     Indication: BLOOD CHOLESTEROL INCREASED
     Dosage: UNK
     Dates: start: 2000
  8. ERYTHROMYCIN [Concomitant]
     Indication: ROSEOLA
     Dosage: UNK
     Dates: start: 1980, end: 201006

REACTIONS (13)
  - Femur fracture [Unknown]
  - Femur fracture [Unknown]
  - Intramedullary rod insertion [Unknown]
  - Intramedullary rod insertion [Unknown]
  - Anaemia postoperative [Unknown]
  - Fall [Unknown]
  - Tooth extraction [Unknown]
  - Tooth disorder [Unknown]
  - Alcoholism [Recovering/Resolving]
  - Hyperchlorhydria [Unknown]
  - Prescribed overdose [Unknown]
  - Hypertension [Unknown]
  - Gastritis [Unknown]
